FAERS Safety Report 12845716 (Version 1)
Quarter: 2016Q4

REPORT INFORMATION
  Report Type: Spontaneous
  Country: US (occurrence: US)
  Receive Date: 20161013
  Receipt Date: 20161013
  Transmission Date: 20170207
  Serious: No
  Sender: FDA-Public Use
  Company Number: US-ASTRAZENECA-2016SF01699

PATIENT
  Age: 954 Month
  Sex: Male

DRUGS (19)
  1. FERROUS SULFATE. [Concomitant]
     Active Substance: FERROUS SULFATE
     Route: 048
     Dates: start: 20140402
  2. FLOMAX [Concomitant]
     Active Substance: TAMSULOSIN HYDROCHLORIDE
     Route: 048
     Dates: start: 20160421
  3. TOPROL XL [Concomitant]
     Active Substance: METOPROLOL SUCCINATE
     Route: 048
  4. DILANTIN [Suspect]
     Active Substance: PHENYTOIN
     Dosage: TAKE 3 CAPSULES IN AM AND 1 CAPSULE IN PM FOR 30 DAYS
     Route: 048
     Dates: start: 20160719
  5. SIMVASTATIN. [Concomitant]
     Active Substance: SIMVASTATIN
     Route: 048
  6. ZANTAC [Concomitant]
     Active Substance: RANITIDINE HYDROCHLORIDE
     Route: 048
     Dates: start: 20130408
  7. CENTRUM ULTRA MEN [Concomitant]
     Dosage: 8 MG IRON- 200 MCG-600 MCG, DAILY
     Route: 048
  8. FINASTERIDE. [Concomitant]
     Active Substance: FINASTERIDE
     Route: 048
     Dates: start: 20160421
  9. OXYGEN. [Concomitant]
     Active Substance: OXYGEN
     Dates: start: 20110909
  10. SYMBICORT [Suspect]
     Active Substance: BUDESONIDE\FORMOTEROL FUMARATE DIHYDRATE
     Indication: CHRONIC OBSTRUCTIVE PULMONARY DISEASE
     Dosage: 160 / 4.5 MCG
     Route: 055
     Dates: start: 20160622
  11. TUDORZA PRESSAIR [Concomitant]
     Active Substance: ACLIDINIUM BROMIDE
  12. VITAMIN D3 [Concomitant]
     Active Substance: CHOLECALCIFEROL
     Dosage: 2000 UNIT ORAL
     Route: 048
  13. NORVASC [Suspect]
     Active Substance: AMLODIPINE BESYLATE
     Route: 048
  14. ALBUTEROL SULFATE. [Concomitant]
     Active Substance: ALBUTEROL SULFATE
     Indication: CHRONIC OBSTRUCTIVE PULMONARY DISEASE
     Dosage: 2.5 MG/3 ML (0.083%) INHALATIO SOLUTION FOR NEBULISING, 3 TIMES A DAY
  15. LIPOFLAVOVIT [Concomitant]
     Route: 048
  16. PLAVIX [Concomitant]
     Active Substance: CLOPIDOGREL BISULFATE
     Route: 048
  17. PLETAL [Concomitant]
     Active Substance: CILOSTAZOL
     Route: 048
  18. LYRICA [Suspect]
     Active Substance: PREGABALIN
     Route: 048
     Dates: start: 20160812
  19. PREDNISONE. [Concomitant]
     Active Substance: PREDNISONE
     Route: 048
     Dates: start: 20160622

REACTIONS (2)
  - Drug hypersensitivity [Not Recovered/Not Resolved]
  - Dyspnoea [Unknown]

NARRATIVE: CASE EVENT DATE: 201606
